FAERS Safety Report 18503544 (Version 1)
Quarter: 2020Q4

REPORT INFORMATION
  Report Type: Spontaneous
  Country: US (occurrence: US)
  Receive Date: 20201113
  Receipt Date: 20201113
  Transmission Date: 20210114
  Serious: Yes (Hospitalization)
  Sender: FDA-Public Use
  Company Number: US-TAKEDA-US202028946

PATIENT
  Sex: Female
  Weight: 64.4 kg

DRUGS (22)
  1. GATTEX [Suspect]
     Active Substance: TEDUGLUTIDE\WATER
     Indication: ESSENTIAL HYPERTENSION
  2. ZOFRAN [Concomitant]
     Active Substance: ONDANSETRON HYDROCHLORIDE
     Indication: PRODUCT USED FOR UNKNOWN INDICATION
  3. MYCOPHENOLATE MOFETIL. [Concomitant]
     Active Substance: MYCOPHENOLATE MOFETIL
     Indication: PRODUCT USED FOR UNKNOWN INDICATION
  4. GATTEX [Suspect]
     Active Substance: TEDUGLUTIDE\WATER
     Indication: ILLNESS
  5. DILTIAZEM. [Concomitant]
     Active Substance: DILTIAZEM
     Indication: PRODUCT USED FOR UNKNOWN INDICATION
  6. SENSIPAR [Concomitant]
     Active Substance: CINACALCET HYDROCHLORIDE
     Indication: PRODUCT USED FOR UNKNOWN INDICATION
  7. GATTEX [Suspect]
     Active Substance: TEDUGLUTIDE\WATER
     Indication: SHORT-BOWEL SYNDROME
  8. GATTEX [Suspect]
     Active Substance: TEDUGLUTIDE\WATER
     Indication: ESSENTIAL HYPERTENSION
  9. GATTEX [Suspect]
     Active Substance: TEDUGLUTIDE\WATER
     Indication: RENAL TRANSPLANT
     Dosage: 0.322 MILLILITER, 1X/DAY:QD
     Route: 065
  10. GATTEX [Suspect]
     Active Substance: TEDUGLUTIDE\WATER
     Indication: RENAL TRANSPLANT
     Dosage: 0.322 MILLILITER, 1X/DAY:QD
     Route: 065
  11. GATTEX [Suspect]
     Active Substance: TEDUGLUTIDE\WATER
     Indication: SHORT-BOWEL SYNDROME
  12. GATTEX [Suspect]
     Active Substance: TEDUGLUTIDE\WATER
     Indication: SHORT-BOWEL SYNDROME
  13. PREDNISONE. [Concomitant]
     Active Substance: PREDNISONE
     Indication: PRODUCT USED FOR UNKNOWN INDICATION
  14. GATTEX [Suspect]
     Active Substance: TEDUGLUTIDE\WATER
     Indication: SHORT-BOWEL SYNDROME
  15. GATTEX [Suspect]
     Active Substance: TEDUGLUTIDE\WATER
     Indication: ESSENTIAL HYPERTENSION
  16. GATTEX [Suspect]
     Active Substance: TEDUGLUTIDE\WATER
     Indication: ILLNESS
  17. GATTEX [Suspect]
     Active Substance: TEDUGLUTIDE\WATER
     Indication: ILLNESS
  18. GATTEX [Suspect]
     Active Substance: TEDUGLUTIDE\WATER
     Indication: ILLNESS
  19. GATTEX [Suspect]
     Active Substance: TEDUGLUTIDE\WATER
     Indication: RENAL TRANSPLANT
     Dosage: 0.322 MILLILITER, 1X/DAY:QD
     Route: 065
  20. GATTEX [Suspect]
     Active Substance: TEDUGLUTIDE\WATER
     Indication: RENAL TRANSPLANT
     Dosage: 0.322 MILLILITER, 1X/DAY:QD
     Route: 065
  21. GATTEX [Suspect]
     Active Substance: TEDUGLUTIDE\WATER
     Indication: ESSENTIAL HYPERTENSION
  22. DOXYCYCLINE HYCLATE. [Concomitant]
     Active Substance: DOXYCYCLINE HYCLATE
     Indication: PRODUCT USED FOR UNKNOWN INDICATION

REACTIONS (1)
  - Hospitalisation [Unknown]
